FAERS Safety Report 5836342-2 (Version None)
Quarter: 2008Q3

REPORT INFORMATION
  Report Type: 
  Country: None (occurrence: None)
  Receive Date: 20080807
  Receipt Date: 20080730
  Transmission Date: 20090109
  Serious: Yes (Other)
  Sender: FDA-Public Use
  Company Number: US-JNJFOC-20080800355

PATIENT
  Age: 41 Year
  Sex: Female

DRUGS (1)
  1. LEVAQUIN [Suspect]
     Indication: AURICULAR PERICHONDRITIS
     Route: 048
     Dates: start: 20080718, end: 20080721

REACTIONS (5)
  - HYPERTENSION [None]
  - HYPOGLYCAEMIA [None]
  - HYPOTENSION [None]
  - PYREXIA [None]
  - TREMOR [None]
